FAERS Safety Report 6161872-6 (Version None)
Quarter: 2009Q2

REPORT INFORMATION
  Report Type: 
  Country: None (occurrence: None)
  Receive Date: 20090421
  Receipt Date: 20090417
  Transmission Date: 20091009
  Serious: Yes (Death, Hospitalization)
  Sender: FDA-Public Use
  Company Number: A0779720A

PATIENT
  Sex: Female
  Weight: 50 kg

DRUGS (5)
  1. SERETIDE [Suspect]
     Dosage: 1PUFF TWICE PER DAY
     Route: 055
     Dates: start: 20090312, end: 20090314
  2. DEFLAZACORT [Concomitant]
     Dosage: 1TAB PER DAY
     Route: 065
  3. ATENOLOL [Concomitant]
     Dosage: 1TAB TWICE PER DAY
     Route: 065
  4. LOSARTAN POTASSIUM [Concomitant]
     Dosage: 1TAB TWICE PER DAY
     Route: 065
  5. ASPIRIN [Concomitant]

REACTIONS (3)
  - DRY MOUTH [None]
  - DYSPNOEA [None]
  - RESPIRATORY FAILURE [None]
